FAERS Safety Report 5584221-0 (Version None)
Quarter: 2008Q1

REPORT INFORMATION
  Report Type: 
  Country: None (occurrence: None)
  Receive Date: 20080108
  Receipt Date: 20071227
  Transmission Date: 20080703
  Serious: Yes (Hospitalization)
  Sender: FDA-Public Use
  Company Number: HQWYE046331JAN07

PATIENT
  Sex: Male

DRUGS (11)
  1. SIROLIMUS [Suspect]
     Indication: PROPHYLAXIS AGAINST TRANSPLANT REJECTION
     Route: 048
     Dates: start: 20061109
  2. TACROLIMUS [Suspect]
     Indication: PROPHYLAXIS AGAINST TRANSPLANT REJECTION
     Dosage: NOT PROVIDED
     Route: 065
     Dates: start: 20061202, end: 20061206
  3. PREDNISONE [Suspect]
     Indication: PROPHYLAXIS AGAINST TRANSPLANT REJECTION
     Route: 048
     Dates: start: 20061030
  4. SEPTRA [Concomitant]
     Dosage: NOT PROVIDED
     Route: 065
     Dates: start: 20060610
  5. NYSTATIN [Concomitant]
     Dosage: NOT PROVIDED
     Route: 065
     Dates: start: 20061122
  6. ACETYLSALICYLIC ACID SRT [Concomitant]
     Dosage: NOT PROVIDED
     Route: 065
     Dates: start: 20060915
  7. NEXIUM [Concomitant]
     Dosage: NOT PROVIDED
     Route: 065
     Dates: start: 20060904
  8. URSODIOL [Concomitant]
     Dosage: NOT PROVIDED
     Route: 065
     Dates: start: 20060927
  9. COLAZIDE [Concomitant]
     Dosage: NOT PROVIDED
     Route: 065
     Dates: start: 20060901
  10. MYCOPHENOLATE MOFETIL [Concomitant]
     Indication: PROPHYLAXIS AGAINST TRANSPLANT REJECTION
     Route: 048
     Dates: start: 20061030, end: 20070119
  11. VALCYTE [Concomitant]
     Dosage: NOT PROVIDED
     Route: 065
     Dates: start: 20060910

REACTIONS (2)
  - ANASTOMOTIC STENOSIS [None]
  - HEPATIC ARTERY THROMBOSIS [None]
